FAERS Safety Report 21951630 (Version 2)
Quarter: 2025Q1

REPORT INFORMATION
  Report Type: Report from Study
  Country: US (occurrence: US)
  Receive Date: 20230203
  Receipt Date: 20250113
  Transmission Date: 20250409
  Serious: No
  Sender: TAKEDA
  Company Number: US-MIC-a0P5b00000UQEUgEAP

PATIENT
  Sex: Female
  Weight: 73 kg

DRUGS (3)
  1. PRUCALOPRIDE [Suspect]
     Active Substance: PRUCALOPRIDE
     Indication: Product used for unknown indication
     Dosage: 2 MILLIGRAM, QD
  2. MIRALAX [Concomitant]
     Active Substance: POLYETHYLENE GLYCOL 3350
  3. LACTULOSE [Concomitant]
     Active Substance: LACTULOSE

REACTIONS (3)
  - Product use issue [Unknown]
  - Wrong technique in product usage process [Unknown]
  - Malaise [Unknown]
